FAERS Safety Report 11031526 (Version 3)
Quarter: 2015Q4

REPORT INFORMATION
  Report Type: Spontaneous
  Country: US (occurrence: US)
  Receive Date: 20150415
  Receipt Date: 20151116
  Transmission Date: 20160304
  Serious: Yes (Hospitalization)
  Sender: FDA-Public Use
  Company Number: US-009507513-1504USA009787

PATIENT
  Sex: Male

DRUGS (2)
  1. PROPECIA [Suspect]
     Active Substance: FINASTERIDE
     Indication: ALOPECIA
     Dosage: 1 MG, QD
     Route: 048
     Dates: start: 19980630, end: 201108
  2. PROSCAR [Suspect]
     Active Substance: FINASTERIDE
     Indication: ALOPECIA
     Dosage: 1/4 OF 5MG TAB QD
     Route: 048
     Dates: end: 201108

REACTIONS (18)
  - Wrong technique in product usage process [Unknown]
  - Loss of libido [Unknown]
  - Hormone level abnormal [Unknown]
  - Intentional product misuse [Unknown]
  - Ejaculation disorder [Unknown]
  - Depression [Not Recovered/Not Resolved]
  - Endocrine disorder [Not Recovered/Not Resolved]
  - Painful ejaculation [Unknown]
  - Erectile dysfunction [Not Recovered/Not Resolved]
  - Alcoholism [Unknown]
  - Inappropriate schedule of drug administration [Unknown]
  - Penis injury [Not Recovered/Not Resolved]
  - Brain injury [Not Recovered/Not Resolved]
  - Panic attack [Not Recovered/Not Resolved]
  - Testicular disorder [Unknown]
  - Anxiety [Not Recovered/Not Resolved]
  - Penile size reduced [Unknown]
  - Sexual dysfunction [Not Recovered/Not Resolved]

NARRATIVE: CASE EVENT DATE: 199809
